FAERS Safety Report 6845067-6 (Version None)
Quarter: 2010Q3

REPORT INFORMATION
  Report Type: 
  Country: None (occurrence: None)
  Receive Date: 20100715
  Receipt Date: 20070726
  Transmission Date: 20110219
  Serious: No
  Sender: FDA-Public Use
  Company Number: US-PFIZER INC-2007068013

PATIENT
  Sex: Female
  Weight: 63.5 kg

DRUGS (12)
  1. CHANTIX [Suspect]
     Indication: SMOKING CESSATION THERAPY
     Dates: start: 20070701
  2. LISINOPRIL [Concomitant]
  3. METFORMIN HCL [Concomitant]
  4. FOLIC ACID [Concomitant]
  5. MONTELUKAST [Concomitant]
  6. THEOPHYLLINE [Concomitant]
  7. AGGRENOX [Concomitant]
  8. MIRALAX [Concomitant]
  9. METHADONE HCL [Concomitant]
  10. NORVASC [Concomitant]
  11. PERCOCET [Concomitant]
     Indication: PAIN
  12. CYMBALTA [Concomitant]

REACTIONS (1)
  - FATIGUE [None]
